FAERS Safety Report 4597562-0 (Version None)
Quarter: 2005Q1

REPORT INFORMATION
  Report Type: 
  Country: None (occurrence: None)
  Receive Date: 20050228
  Receipt Date: 20050228
  Transmission Date: 20050727
  Serious: Yes (Other)
  Sender: FDA-Public Use
  Company Number: None

PATIENT
  Sex: Female
  Weight: 63.5036 kg

DRUGS (2)
  1. ANY FLUORIDATED TOOTHPASTE [Suspect]
  2. FLUORIDE IN WATER OR BEVERAGE [Suspect]

REACTIONS (5)
  - DRUG HYPERSENSITIVITY [None]
  - FLUID RETENTION [None]
  - HEADACHE [None]
  - STOMATITIS [None]
  - VOMITING [None]
